FAERS Safety Report 7964737-X (Version None)
Quarter: 2011Q4

REPORT INFORMATION
  Report Type: 
  Country: None (occurrence: None)
  Receive Date: 20111208
  Receipt Date: 20111128
  Transmission Date: 20120403
  Serious: Yes (Hospitalization, Other)
  Sender: FDA-Public Use
  Company Number: DE-ELI_LILLY_AND_COMPANY-DE201111008433

PATIENT
  Age: 22 Year
  Sex: Male

DRUGS (1)
  1. ZYPREXA [Suspect]
     Dosage: 20 MG, QD
     Route: 048
     Dates: start: 20110801, end: 20110815

REACTIONS (4)
  - DRUG THERAPY CHANGED [None]
  - ALANINE AMINOTRANSFERASE INCREASED [None]
  - WEIGHT INCREASED [None]
  - ASPARTATE AMINOTRANSFERASE INCREASED [None]
